FAERS Safety Report 5281207-0 (Version None)
Quarter: 2007Q1

REPORT INFORMATION
  Report Type: 
  Country: None (occurrence: None)
  Receive Date: 20070329
  Receipt Date: 20070322
  Transmission Date: 20070707
  Serious: Yes (Hospitalization)
  Sender: FDA-Public Use
  Company Number: JP-ABBOTT-07P-087-0362824-00

PATIENT
  Age: 34 Year
  Sex: Male

DRUGS (11)
  1. CLARITHROMYCIN [Suspect]
     Indication: ACNE
     Route: 048
     Dates: end: 20060601
  2. MESALAZINE [Suspect]
     Indication: COLITIS ULCERATIVE
     Route: 048
     Dates: start: 20060401, end: 20060601
  3. MESALAZINE [Suspect]
     Route: 048
     Dates: start: 20060601, end: 20060601
  4. HERBAL MEDICATIONS [Concomitant]
     Indication: COLITIS ULCERATIVE
     Route: 048
     Dates: start: 20060401, end: 20060601
  5. CIMETIDINE HCL [Concomitant]
     Indication: COLITIS ULCERATIVE
     Route: 048
     Dates: start: 20060401, end: 20060601
  6. TEPRENONE [Concomitant]
     Indication: COLITIS ULCERATIVE
     Route: 048
     Dates: start: 20060401, end: 20060601
  7. ETIZOLAM [Concomitant]
     Indication: DRUG USE FOR UNKNOWN INDICATION
     Route: 048
     Dates: end: 20060601
  8. TIPEPIDINE HIBENZATE [Concomitant]
     Indication: DRUG USE FOR UNKNOWN INDICATION
     Route: 048
     Dates: end: 20060601
  9. THEOPHYLLINE [Concomitant]
     Indication: DRUG USE FOR UNKNOWN INDICATION
     Route: 048
     Dates: end: 20060601
  10. MINOCYCLINE HYDROCHLORIDE [Concomitant]
     Indication: DRUG USE FOR UNKNOWN INDICATION
     Route: 048
     Dates: end: 20060601
  11. CEFPODOXIME PROXETIL [Concomitant]
     Indication: DRUG USE FOR UNKNOWN INDICATION
     Route: 048
     Dates: end: 20060601

REACTIONS (4)
  - COUGH [None]
  - DYSPNOEA [None]
  - EOSINOPHILIC PNEUMONIA [None]
  - PYREXIA [None]
